FAERS Safety Report 9448395 (Version 2)
Quarter: 2013Q3

REPORT INFORMATION
  Report Type: Spontaneous
  Country: JP (occurrence: JP)
  Receive Date: 20130808
  Receipt Date: 20130830
  Transmission Date: 20140515
  Serious: Yes (Hospitalization, Other)
  Sender: FDA-Public Use
  Company Number: JP-PFIZER INC-2013230287

PATIENT
  Age: 80 Year
  Sex: Male

DRUGS (3)
  1. AMLODIN [Suspect]
     Indication: HYPERTENSION
     Dosage: 5 MG, DAILY
     Route: 048
     Dates: end: 20130725
  2. METHYCOBAL [Concomitant]
     Dosage: 1500 UG, DAILY
     Route: 048
  3. GLYCYRON [Concomitant]
     Indication: HEPATITIS C
     Dosage: 6 DF/DAY
     Route: 048

REACTIONS (1)
  - Atrioventricular block complete [Not Recovered/Not Resolved]
